FAERS Safety Report 6680306-6 (Version None)
Quarter: 2010Q2

REPORT INFORMATION
  Report Type: 
  Country: None (occurrence: None)
  Receive Date: 20100413
  Receipt Date: 20100401
  Transmission Date: 20101027
  Serious: Yes (Hospitalization, Other)
  Sender: FDA-Public Use
  Company Number: JP-ROCHE-683003

PATIENT
  Sex: Male
  Weight: 92 kg

DRUGS (26)
  1. TOCILIZUMAB [Suspect]
     Indication: CASTLEMAN'S DISEASE
     Dosage: FORM: INJECTION,
     Route: 041
     Dates: start: 20090123, end: 20090123
  2. TOCILIZUMAB [Suspect]
     Dosage: FORM: INJECTION
     Route: 041
     Dates: start: 20090210, end: 20090818
  3. TOCILIZUMAB [Suspect]
     Dosage: FORM: INJECTION.
     Route: 041
     Dates: start: 20090901, end: 20090929
  4. TOCILIZUMAB [Suspect]
     Dosage: FORM: INJECTION.
     Route: 041
     Dates: start: 20091013, end: 20091013
  5. TOCILIZUMAB [Suspect]
     Dosage: FORM: INJECTION.
     Route: 041
     Dates: start: 20091104, end: 20100113
  6. TOCILIZUMAB [Suspect]
     Dosage: FORM: INJECTION
     Route: 041
     Dates: start: 20100203
  7. PREDONINE [Suspect]
     Indication: CASTLEMAN'S DISEASE
     Route: 048
  8. MAXIPIME [Suspect]
     Route: 041
     Dates: start: 20100119, end: 20100123
  9. HYDROCORTISONE [Concomitant]
     Dosage: FORM: INJECTION, NOTE: WHEN ADMINISTERING ACTEMRA
     Route: 041
     Dates: start: 20090410
  10. TAKEPRON [Concomitant]
     Route: 048
     Dates: end: 20090210
  11. TAKEPRON [Concomitant]
     Route: 048
     Dates: start: 20090224
  12. COTRIM [Concomitant]
     Route: 048
     Dates: end: 20090210
  13. COTRIM [Concomitant]
     Route: 048
     Dates: start: 20090224
  14. ALLOPURINOL [Concomitant]
     Route: 048
     Dates: end: 20090210
  15. ALLOPURINOL [Concomitant]
     Route: 048
     Dates: start: 20090224
  16. BIOFERMIN [Concomitant]
     Route: 048
     Dates: end: 20090210
  17. FERROMIA [Concomitant]
     Route: 048
     Dates: end: 20090210
  18. AMARYL [Concomitant]
     Route: 048
     Dates: end: 20090210
  19. AMARYL [Concomitant]
     Route: 048
     Dates: start: 20090224
  20. BENET [Concomitant]
     Route: 048
     Dates: end: 20090210
  21. ARTIST [Concomitant]
     Route: 048
     Dates: start: 20090224
  22. LOSARTAN POTASSIUM AND HYDROCHLOROTHIAZIDE [Concomitant]
     Route: 048
     Dates: start: 20090224
  23. FOSAMAX [Concomitant]
     Dosage: DRUG NAME REPORTED AS FOSAMAC 35 MG
     Route: 048
     Dates: start: 20090224
  24. METHYCOBAL [Concomitant]
     Route: 048
     Dates: start: 20091216
  25. PREDNISOLONE [Concomitant]
     Dosage: DOSE FORM: PERORAL AGENT
     Route: 048
     Dates: end: 20090210
  26. GLUCOBAY [Concomitant]
     Route: 048

REACTIONS (8)
  - ANAL ABSCESS [None]
  - BLOOD CREATININE INCREASED [None]
  - BLOOD UREA INCREASED [None]
  - CONSTIPATION [None]
  - ELECTROCARDIOGRAM POOR R-WAVE PROGRESSION [None]
  - MYOPATHY [None]
  - PYREXIA [None]
  - ULNAR NEURITIS [None]
